FAERS Safety Report 5158913-1 (Version None)
Quarter: 2006Q4

REPORT INFORMATION
  Report Type: 
  Country: None (occurrence: None)
  Receive Date: 20061117
  Receipt Date: 20061031
  Transmission Date: 20070319
  Serious: Yes (Hospitalization, Disabling)
  Sender: FDA-Public Use
  Company Number: 231537

PATIENT
  Age: 76 Year
  Sex: Male

DRUGS (9)
  1. RANIBIZUMAB(RANIBIZUMAB) PWDR + SOLVENT, INJECTION SOLN [Suspect]
     Indication: MACULAR DEGENERATION
     Dosage: INTRAVITREAL
     Route: 011
     Dates: start: 20060210
  2. OCUVITE (ASCORBIC ACID, BETA CAROTENE, COPPER NOS, LUTEIN, SELENIUM NO [Concomitant]
  3. ANTIHISTAMINE (ANTIHISTAMINE NOS) [Concomitant]
  4. OROVITE (ASCORBIC ACID, VITAMIN B COMPLEX) [Concomitant]
  5. NARCOTICS (NARCOTIC NOS) [Concomitant]
  6. TORADOL [Concomitant]
  7. TYLENOL (CAPLET) [Concomitant]
  8. IBUPROFEN [Concomitant]
  9. PERCOCET [Concomitant]

REACTIONS (11)
  - AGITATION [None]
  - ANOREXIA [None]
  - BONE CANCER METASTATIC [None]
  - CHEST PAIN [None]
  - COLON CANCER [None]
  - CONFUSIONAL STATE [None]
  - COUGH [None]
  - DISORIENTATION [None]
  - HEPATIC CANCER METASTATIC [None]
  - LUNG CANCER METASTATIC [None]
  - LYMPH NODE CANCER METASTATIC [None]
